FAERS Safety Report 17419391 (Version 1)
Quarter: 2020Q1

REPORT INFORMATION
  Report Type: Spontaneous
  Country: US (occurrence: US)
  Receive Date: 20200131
  Receipt Date: 20200131
  Transmission Date: 20200409
  Serious: No
  Sender: FDA-Public Use
  Company Number: None

PATIENT
  Age: 80 Year
  Sex: Male

DRUGS (1)
  1. ZYTIGA [Suspect]
     Active Substance: ABIRATERONE ACETATE
     Dosage: 12/25/2019 - 12/26/2019
     Route: 048
     Dates: start: 20191225, end: 20191226

REACTIONS (5)
  - Nausea [None]
  - Asthenia [None]
  - Therapy cessation [None]
  - Blood pressure increased [None]
  - Hyperhidrosis [None]

NARRATIVE: CASE EVENT DATE: 20191224
